FAERS Safety Report 8558621-0 (Version None)
Quarter: 2012Q3

REPORT INFORMATION
  Report Type: 
  Country: None (occurrence: None)
  Receive Date: 20120801
  Receipt Date: 20120724
  Transmission Date: 20120928
  Serious: Yes (Other)
  Sender: FDA-Public Use
  Company Number: US-UCBSA-062589

PATIENT
  Sex: Female

DRUGS (3)
  1. MERCAPTOPURINE [Concomitant]
     Dates: start: 20120701
  2. CIMZIA [Suspect]
     Indication: CROHN'S DISEASE
     Dates: start: 20120101, end: 20120101
  3. CLARITIN [Concomitant]
     Dosage: DAILY BASIS

REACTIONS (2)
  - LIP SWELLING [None]
  - PALATAL OEDEMA [None]
